FAERS Safety Report 8990609 (Version 2)
Quarter: 2013Q1

REPORT INFORMATION
  Report Type: Spontaneous
  Country: CA (occurrence: CA)
  Receive Date: 20121228
  Receipt Date: 20130128
  Transmission Date: 20140127
  Serious: Yes (Other)
  Sender: FDA-Public Use
  Company Number: CA-PFIZER INC-2012328116

PATIENT
  Age: 60 Year
  Sex: Male

DRUGS (1)
  1. CHAMPIX [Suspect]
     Indication: SMOKING CESSATION THERAPY
     Dosage: UNK
     Dates: start: 20121220, end: 201301

REACTIONS (7)
  - Alcoholic [Not Recovered/Not Resolved]
  - Drug dependence [Not Recovered/Not Resolved]
  - Depression [Recovering/Resolving]
  - Emphysema [Not Recovered/Not Resolved]
  - Mood swings [Recovering/Resolving]
  - Abnormal dreams [Recovering/Resolving]
  - Nausea [Recovering/Resolving]
